FAERS Safety Report 9290635 (Version 1)
Quarter: 2013Q2

REPORT INFORMATION
  Report Type: Spontaneous
  Country: FR (occurrence: None)
  Receive Date: 20130513
  Receipt Date: 20130513
  Transmission Date: 20140414
  Serious: Yes (Death, Congenital Anomaly)
  Sender: FDA-Public Use
  Company Number: 2013P1005695

PATIENT
  Sex: Male

DRUGS (1)
  1. PLAQUENIL [Suspect]
     Indication: FOETAL EXPOSURE DURING PREGNANCY
     Route: 064
     Dates: start: 20110808, end: 201109

REACTIONS (12)
  - Maternal drugs affecting foetus [None]
  - Congenital musculoskeletal anomaly [None]
  - Bone disorder [None]
  - Skull malformation [None]
  - Dysmorphism [None]
  - Exophthalmos congenital [None]
  - Hypertelorism of orbit [None]
  - Congenital nose malformation [None]
  - Talipes [None]
  - Abortion induced [None]
  - Bone deformity [None]
  - Placental disorder [None]
